FAERS Safety Report 21991648 (Version 1)
Quarter: 2023Q1

REPORT INFORMATION
  Report Type: Spontaneous
  Country: AT (occurrence: AT)
  Receive Date: 20230214
  Receipt Date: 20230214
  Transmission Date: 20230417
  Serious: Yes (Other)
  Sender: FDA-Public Use
  Company Number: AT-ROCHE-2649906

PATIENT
  Age: 57 Year
  Sex: Female

DRUGS (13)
  1. TRASTUZUMAB [Suspect]
     Active Substance: TRASTUZUMAB
     Indication: Breast cancer
     Dosage: DOSE PRIOR EVENT: 23/MAR/2020, INTRAVENOUS DRIP
     Route: 042
     Dates: start: 20171103, end: 20171103
  2. TRASTUZUMAB [Suspect]
     Active Substance: TRASTUZUMAB
     Dosage: DOSE PRIOR EVENT: 23/MAR/2020, INTRAVENOUS DRIP
     Route: 042
     Dates: start: 20200323
  3. ADO-TRASTUZUMAB EMTANSINE [Suspect]
     Active Substance: ADO-TRASTUZUMAB EMTANSINE
     Indication: Breast cancer
     Dosage: Q3W MOST RECENT DOSE PRIOR TO EVENT:06/NOV/2019
     Route: 042
     Dates: start: 20190531, end: 20191105
  4. ADO-TRASTUZUMAB EMTANSINE [Suspect]
     Active Substance: ADO-TRASTUZUMAB EMTANSINE
     Dosage: Q3W MOST RECENT DOSE PRIOR TO EVENT:06/NOV/2019
     Route: 042
     Dates: start: 20190531
  5. PERTUZUMAB [Suspect]
     Active Substance: PERTUZUMAB
     Indication: Breast cancer
     Dosage: FREQUENCY: OTHER DOSE PRIOR TO EVENT: 24/NOV/2017
     Route: 042
     Dates: start: 20171124
  6. PERTUZUMAB [Suspect]
     Active Substance: PERTUZUMAB
     Dosage: FREQUENCY: OTHER DOSE PRIOR TO EVENT:24/NOV/2017
     Route: 042
     Dates: start: 20171103, end: 20171103
  7. CAPECITABINE [Suspect]
     Active Substance: CAPECITABINE
     Indication: Breast cancer
     Dosage: FREQUENCY: OTHER
     Route: 048
     Dates: start: 20200506
  8. CAPECITABINE [Suspect]
     Active Substance: CAPECITABINE
     Dosage: FREQUENCY: OTHER
     Route: 048
     Dates: start: 20200323, end: 20200506
  9. VINORELBINE [Suspect]
     Active Substance: VINORELBINE TARTRATE
     Indication: Breast cancer
     Dosage: FREQUENCY: WEEKLY,DOSE PRIOR EVENT: 24/NOV/2017
     Route: 048
     Dates: start: 20171103, end: 20171124
  10. HYDROMORPHONE HYDROCHLORIDE [Concomitant]
     Active Substance: HYDROMORPHONE HYDROCHLORIDE
     Dosage: ONGOING = CHECKED
     Route: 065
     Dates: start: 20200323
  11. Novalgin [Concomitant]
     Dosage: ONGOING = CHECKED
     Route: 065
     Dates: start: 20200323
  12. POLYETHYLENE GLYCOL 3350\POTASSIUM CHLORIDE\SODIUM BICARBONATE\SODIUM [Concomitant]
     Active Substance: POLYETHYLENE GLYCOL 3350\POTASSIUM CHLORIDE\SODIUM BICARBONATE\SODIUM CHLORIDE
     Dosage: UNK
     Route: 065
     Dates: start: 20200323
  13. Paspertin [Concomitant]
     Dosage: ONGOING = CHECKED
     Route: 065
     Dates: start: 20200323

REACTIONS (2)
  - Neutrophil count decreased [Recovered/Resolved]
  - Skin toxicity [Recovered/Resolved]

NARRATIVE: CASE EVENT DATE: 20200415
